FAERS Safety Report 8097840-7 (Version None)
Quarter: 2012Q1

REPORT INFORMATION
  Report Type: 
  Country: None (occurrence: None)
  Receive Date: 20120128
  Receipt Date: 20110815
  Transmission Date: 20120608
  Serious: No
  Sender: FDA-Public Use
  Company Number: US-ABBOTT-11P-163-0846435-00

PATIENT
  Age: 25 Year
  Sex: Female

DRUGS (4)
  1. PLAQUENIL [Concomitant]
     Indication: RHEUMATOID ARTHRITIS
  2. KARIVA [Concomitant]
     Indication: CONTRACEPTION
  3. ALEVE OTC [Concomitant]
     Indication: PAIN
     Dosage: PRN
  4. HUMIRA [Suspect]
     Indication: RHEUMATOID ARTHRITIS
     Dates: start: 20110803

REACTIONS (7)
  - INJECTION SITE WARMTH [None]
  - INJECTION SITE NODULE [None]
  - PRURITUS [None]
  - INJECTION SITE PRURITUS [None]
  - INJECTION SITE ERYTHEMA [None]
  - URTICARIA [None]
  - INJECTION SITE REACTION [None]
